FAERS Safety Report 6301873-8 (Version None)
Quarter: 2009Q3

REPORT INFORMATION
  Report Type: 
  Country: None (occurrence: None)
  Receive Date: 20090807
  Receipt Date: 20090729
  Transmission Date: 20100115
  Serious: Yes (Other)
  Sender: FDA-Public Use
  Company Number: US-ROCHE-644118

PATIENT

DRUGS (2)
  1. CAPECITABINE [Suspect]
     Indication: BREAST CANCER
     Dosage: FREQUENCY: TWO WEEKS ON; TWO WEEKS OFF.
     Route: 065
     Dates: end: 20090611
  2. TYKERB [Suspect]
     Indication: DRUG USE FOR UNKNOWN INDICATION
     Route: 065

REACTIONS (2)
  - HEPATIC NEOPLASM [None]
  - MALIGNANT NEOPLASM PROGRESSION [None]
